FAERS Safety Report 10098449 (Version 1)
Quarter: 2014Q2

REPORT INFORMATION
  Report Type: Spontaneous
  Country: CH (occurrence: CH)
  Receive Date: 20140423
  Receipt Date: 20140423
  Transmission Date: 20141212
  Serious: Yes (Hospitalization)
  Sender: FDA-Public Use
  Company Number: CH-ROCHE-1385176

PATIENT
  Sex: Male

DRUGS (9)
  1. TOREM [Suspect]
     Indication: FLUID RETENTION
     Route: 065
     Dates: end: 20140317
  2. TOREM [Suspect]
     Route: 065
     Dates: end: 20140317
  3. MARCOUMAR [Concomitant]
     Route: 065
  4. ALDACTONE (SWITZERLAND) [Concomitant]
  5. NITRODERM TTS5 [Concomitant]
  6. CORDARONE [Concomitant]
  7. BELOC [Concomitant]
  8. SORTIS [Concomitant]
  9. COSAAR [Concomitant]
     Route: 065

REACTIONS (10)
  - General physical health deterioration [Recovered/Resolved]
  - Weight decreased [Unknown]
  - Dehydration [Recovered/Resolved]
  - Orthostatic intolerance [Recovered/Resolved]
  - Hypovolaemia [Recovered/Resolved]
  - Headache [Recovered/Resolved]
  - Vertigo positional [Recovered/Resolved]
  - Nausea [Recovered/Resolved]
  - Abdominal tenderness [Recovered/Resolved]
  - Presyncope [Recovered/Resolved]
